FAERS Safety Report 16299225 (Version 1)
Quarter: 2019Q2

REPORT INFORMATION
  Report Type: Spontaneous
  Country: US (occurrence: US)
  Receive Date: 20190510
  Receipt Date: 20190510
  Transmission Date: 20190711
  Serious: No
  Sender: FDA-Public Use
  Company Number: US-ASTRAZENECA-2019SE57329

PATIENT

DRUGS (1)
  1. PULMICORT FLEXHALER [Suspect]
     Active Substance: BUDESONIDE
     Route: 055
     Dates: start: 201904

REACTIONS (5)
  - Off label use [Unknown]
  - Drug ineffective [Unknown]
  - Asthma [Unknown]
  - Intentional dose omission [Unknown]
  - Circumstance or information capable of leading to device use error [Unknown]
